FAERS Safety Report 7512361-5 (Version None)
Quarter: 2011Q2

REPORT INFORMATION
  Report Type: 
  Country: None (occurrence: None)
  Receive Date: 20110531
  Receipt Date: 20110520
  Transmission Date: 20111010
  Serious: Yes (Hospitalization)
  Sender: FDA-Public Use
  Company Number: FR-ROCHE-760435

PATIENT
  Sex: Female

DRUGS (9)
  1. TOPOTECAN [Suspect]
     Indication: OVARIAN CANCER
     Route: 065
  2. OXALIPLATIN [Concomitant]
     Dates: start: 20101129, end: 20110120
  3. BEVACIZUMAB [Suspect]
     Indication: OVARIAN CANCER
     Dosage: LAST DOSE PRIOR SAE: 29 NOVEMBER 2010
     Route: 042
     Dates: start: 20100827
  4. PROZAC [Concomitant]
  5. ACEBUTOLOL [Concomitant]
  6. PRAVASTATIN [Concomitant]
  7. PACLITAXEL [Suspect]
     Indication: OVARIAN CANCER
     Route: 065
  8. DOXORUBICIN HCL [Suspect]
     Indication: OVARIAN CANCER
     Dosage: LAST DOSE PRIOR TO SAE ON 30 JULY 201, DRUG: PEGYLATED LIPOSOMAL DOXORUBICIN (PLD).
     Route: 042
     Dates: start: 20100507
  9. GEMCITABINE [Concomitant]
     Dates: start: 20101129, end: 20110120

REACTIONS (1)
  - LEFT VENTRICULAR DYSFUNCTION [None]
